FAERS Safety Report 15179959 (Version 1)
Quarter: 2018Q3

REPORT INFORMATION
  Report Type: Spontaneous
  Country: US (occurrence: US)
  Receive Date: 20180723
  Receipt Date: 20180723
  Transmission Date: 20181010
  Serious: No
  Sender: FDA-Public Use
  Company Number: US-009507513-1001USA01900

PATIENT
  Age: 38 Year
  Sex: Female

DRUGS (12)
  1. ATAZANAVIR SULFATE. [Concomitant]
     Active Substance: ATAZANAVIR SULFATE
     Dosage: TOTAL DAILY DOSE: 300
     Route: 048
  2. LOPINAVIR (+) RITONAVIR [Concomitant]
     Active Substance: LOPINAVIR\RITONAVIR
     Dosage: TOTAL DAILY DOSE: 6
     Route: 048
  3. TENOFOVIR DISOPROXIL FUMARATE. [Concomitant]
     Active Substance: TENOFOVIR DISOPROXIL FUMARATE
     Dosage: TOTAL DAILY DOSE: 300
     Route: 048
  4. ZIDOVUDINE. [Concomitant]
     Active Substance: ZIDOVUDINE
     Dosage: TOTAL DAILY DOSE: 200
     Route: 042
  5. ISENTRESS [Suspect]
     Active Substance: RALTEGRAVIR POTASSIUM
     Dosage: TOTAL DAILY DOSE: 800
     Route: 048
  6. RITONAVIR. [Concomitant]
     Active Substance: RITONAVIR
     Dosage: TOTAL DAILY DOSE: 100
     Route: 048
  7. ATAZANAVIR SULFATE. [Concomitant]
     Active Substance: ATAZANAVIR SULFATE
     Dosage: TOTAL DAILY DOSE: 400
     Route: 048
  8. ABACAVIR SULFATE (+) LAMIVUDINE [Concomitant]
     Active Substance: ABACAVIR SULFATE\LAMIVUDINE
     Dosage: TOTAL DAILY DOSE: 1
     Route: 048
  9. RITONAVIR. [Concomitant]
     Active Substance: RITONAVIR
     Dosage: TOTAL DAILY DOSE: 100
     Route: 048
  10. ABACAVIR SULFATE (+) LAMIVUDINE [Concomitant]
     Active Substance: ABACAVIR SULFATE\LAMIVUDINE
     Dosage: TOTAL DAILY DOSE: 1
     Route: 048
  11. TENOFOVIR DISOPROXIL FUMARATE. [Concomitant]
     Active Substance: TENOFOVIR DISOPROXIL FUMARATE
     Dosage: TOTAL DAILY DOSE: 300
     Route: 048
  12. ATAZANAVIR SULFATE. [Concomitant]
     Active Substance: ATAZANAVIR SULFATE
     Dosage: TOTAL DAILY DOSE: 300
     Route: 048

REACTIONS (1)
  - Exposure during pregnancy [Recovered/Resolved]
